FAERS Safety Report 22011984 (Version 4)
Quarter: 2023Q2

REPORT INFORMATION
  Report Type: Spontaneous
  Country: FR (occurrence: FR)
  Receive Date: 20230220
  Receipt Date: 20230428
  Transmission Date: 20230721
  Serious: No
  Sender: FDA-Public Use
  Company Number: FR-MYLANLABS-2023M1015182

PATIENT
  Age: 31 Month
  Sex: Female
  Weight: 12 kg

DRUGS (3)
  1. EPIPEN JR [Suspect]
     Active Substance: EPINEPHRINE
     Indication: Anaphylactic shock
     Dosage: UNK
     Route: 065
     Dates: start: 202301, end: 202301
  2. EPIPEN JR [Suspect]
     Active Substance: EPINEPHRINE
     Dosage: UNK ONCE (START DATE: 03-FEB-2023 AND STOP DATE 03-FEB-2023)
     Route: 065
  3. DESLORATADINE [Concomitant]
     Active Substance: DESLORATADINE
     Dosage: UNK
     Route: 065

REACTIONS (7)
  - Injection site bruising [Recovered/Resolved]
  - Injection site haematoma [Unknown]
  - Injection site pain [Unknown]
  - Complication of device removal [Unknown]
  - Wrong technique in device usage process [Unknown]
  - Injury associated with device [Unknown]
  - Off label use [Unknown]

NARRATIVE: CASE EVENT DATE: 20230101
